FAERS Safety Report 4469775-X (Version None)
Quarter: 2004Q4

REPORT INFORMATION
  Report Type: 
  Country: None (occurrence: None)
  Receive Date: 20041005
  Receipt Date: 20040929
  Transmission Date: 20050328
  Serious: Yes (Hospitalization, Other)
  Sender: FDA-Public Use
  Company Number: USA-2002-0000556

PATIENT
  Age: 55 Year
  Sex: Female
  Weight: 72.6 kg

DRUGS (33)
  1. OXYCONTIN [Suspect]
     Indication: PAIN
     Dosage: 10 MG, ORAL
     Route: 048
     Dates: start: 19990708, end: 20000128
  2. OXYCONTIN [Suspect]
     Indication: PAIN
     Dosage: 20 MG, ORAL
     Route: 048
     Dates: start: 19991229, end: 20000531
  3. AMBIEN [Concomitant]
  4. CELEBREX [Concomitant]
  5. PAXIL [Concomitant]
  6. ZANAFLEX [Concomitant]
  7. MEDROXYPROGESTERONE [Concomitant]
  8. PREMARIN [Concomitant]
  9. NIZORAL [Concomitant]
  10. SENOKOT [Concomitant]
  11. WELLBUTRIN SR [Concomitant]
  12. ZOLOFT [Concomitant]
  13. SONATA [Concomitant]
  14. ULTRAM [Concomitant]
  15. CATAPRES-TTS-1 [Concomitant]
  16. VITAMINS NOS (VITAMINS NOS) [Concomitant]
  17. VERSED [Concomitant]
  18. FENTANYL [Concomitant]
  19. BUPIVACAINE [Concomitant]
  20. SYNVISC (HYALURONATE SODIUM) [Concomitant]
  21. LIDOCAINE (LIDOCAINE0 [Concomitant]
  22. VIOXX [Concomitant]
  23. NEURONTIN [Concomitant]
  24. REMERON [Concomitant]
  25. TRAZODONE HCL [Concomitant]
  26. METAMUCIL-2 [Concomitant]
  27. SPORANOX [Concomitant]
  28. MILK OF MAGNESIA (MAGNESIUM HYDROXIDE) [Concomitant]
  29. MAALOX (MAGNESIUM HYDROXIDE, ALUMINIUM HYDROXIDE GEL) [Concomitant]
  30. KETOPROFEN [Concomitant]
  31. ALLEGRA [Concomitant]
  32. TALACEN (PENTAZOCINE HYDROCHLORIDE) [Concomitant]
  33. FLONASE [Concomitant]

REACTIONS (28)
  - AGITATION [None]
  - ALANINE AMINOTRANSFERASE INCREASED [None]
  - ALCOHOL USE [None]
  - ANOREXIA [None]
  - ANXIETY [None]
  - ARTHRALGIA [None]
  - ASPARTATE AMINOTRANSFERASE INCREASED [None]
  - BASOPHIL PERCENTAGE INCREASED [None]
  - CONDITION AGGRAVATED [None]
  - CONSTIPATION [None]
  - DEPRESSION [None]
  - DIZZINESS [None]
  - DRUG ABUSER [None]
  - DRUG DEPENDENCE [None]
  - DRUG INEFFECTIVE [None]
  - FALL [None]
  - HYPERHIDROSIS [None]
  - INSOMNIA [None]
  - LABORATORY TEST ABNORMAL [None]
  - NAUSEA [None]
  - NECK PAIN [None]
  - PAIN [None]
  - PAIN IN EXTREMITY [None]
  - PALPITATIONS [None]
  - PANIC ATTACK [None]
  - SEDATION [None]
  - SUICIDAL IDEATION [None]
  - WEIGHT DECREASED [None]
